FAERS Safety Report 5380075-6 (Version None)
Quarter: 2007Q3

REPORT INFORMATION
  Report Type: 
  Country: None (occurrence: None)
  Receive Date: 20070706
  Receipt Date: 20070417
  Transmission Date: 20080115
  Serious: No
  Sender: FDA-Public Use
  Company Number: A0647665A

PATIENT
  Age: 67 Year
  Sex: Female

DRUGS (6)
  1. TYKERB [Suspect]
     Indication: BREAST CANCER
     Dosage: 1250MG PER DAY
     Route: 048
     Dates: start: 20070405
  2. VITAMIN CAP [Concomitant]
  3. VITAMIN B6 [Concomitant]
  4. VITAMIN E [Concomitant]
  5. CELEBREX [Concomitant]
  6. NEXIUM [Concomitant]

REACTIONS (3)
  - DEFAECATION URGENCY [None]
  - DIARRHOEA [None]
  - MUSCLE SPASMS [None]
